FAERS Safety Report 18737280 (Version 4)
Quarter: 2021Q4

REPORT INFORMATION
  Report Type: Report from Study
  Country: FR (occurrence: FR)
  Receive Date: 20210113
  Receipt Date: 20211005
  Transmission Date: 20220304
  Serious: Yes (Life-Threatening, Hospitalization, Other)
  Sender: FDA-Public Use
  Company Number: NVSC2020FR226193

PATIENT
  Age: 7 Year
  Sex: Female
  Weight: 16.5 kg

DRUGS (32)
  1. TOPOTECAN [Suspect]
     Active Substance: TOPOTECAN HYDROCHLORIDE
     Indication: Neoplasm malignant
     Dosage: 0.75 MG/M2, QD
     Route: 042
     Dates: start: 20200708, end: 20200712
  2. TOPOTECAN [Suspect]
     Active Substance: TOPOTECAN HYDROCHLORIDE
     Dosage: 0.75 MG/M2, QD
     Route: 042
     Dates: start: 20200730, end: 20200803
  3. TOPOTECAN [Suspect]
     Active Substance: TOPOTECAN HYDROCHLORIDE
     Dosage: 250 MG/M2, QD
     Route: 065
     Dates: start: 20200708, end: 20201108
  4. TOPOTECAN [Suspect]
     Active Substance: TOPOTECAN HYDROCHLORIDE
     Dosage: 0.52 MG
     Route: 042
     Dates: start: 20210119, end: 20210123
  5. CYCLOPHOSPHAMIDE [Suspect]
     Active Substance: CYCLOPHOSPHAMIDE
     Indication: Neoplasm malignant
     Dosage: 250 MG/M2, QD (DAY 1-5 OF 21 DAYS CYCLE)
     Route: 042
     Dates: start: 20200708, end: 20201106
  6. CYCLOPHOSPHAMIDE [Suspect]
     Active Substance: CYCLOPHOSPHAMIDE
     Indication: Neuroblastoma
     Dosage: 250 MG/M2, QD
     Route: 042
     Dates: start: 20200730, end: 20200803
  7. CYCLOPHOSPHAMIDE [Suspect]
     Active Substance: CYCLOPHOSPHAMIDE
     Dosage: 0.75 MG/M2, QD
     Route: 042
     Dates: start: 20200708, end: 20201106
  8. CYCLOPHOSPHAMIDE [Suspect]
     Active Substance: CYCLOPHOSPHAMIDE
     Dosage: 175 MG
     Route: 042
     Dates: start: 20210119, end: 20210125
  9. VENETOCLAX [Suspect]
     Active Substance: VENETOCLAX
     Indication: Neoplasm malignant
     Dosage: 120 MG 1 IN 1 D (TABLET FOR ORAL SUSPENSION) (1 IN 1 - 2 X 5 DAYS EVERY 2-)
     Route: 048
     Dates: start: 20200706, end: 20200706
  10. VENETOCLAX [Suspect]
     Active Substance: VENETOCLAX
     Indication: Neuroblastoma
     Dosage: 250 MG, QD
     Route: 048
     Dates: start: 20200706, end: 20200706
  11. VENETOCLAX [Suspect]
     Active Substance: VENETOCLAX
     Dosage: 250 MG
     Route: 048
     Dates: start: 20200707, end: 20200715
  12. VENETOCLAX [Suspect]
     Active Substance: VENETOCLAX
     Dosage: 250 MG 1 IN 1 D (TABLET FOR ORAL SUSPENSION)
     Route: 048
     Dates: end: 20200808
  13. VENETOCLAX [Suspect]
     Active Substance: VENETOCLAX
     Dosage: 250 MG, QD
     Route: 048
     Dates: start: 20200707, end: 20200712
  14. VENETOCLAX [Suspect]
     Active Substance: VENETOCLAX
     Dosage: 250 MG, QD
     Route: 048
     Dates: start: 20200713, end: 20200715
  15. VENETOCLAX [Suspect]
     Active Substance: VENETOCLAX
     Dosage: 250 MG, QD
     Route: 048
     Dates: start: 20200730, end: 20200808
  16. VENETOCLAX [Suspect]
     Active Substance: VENETOCLAX
     Dosage: 250 MG, QD
     Route: 048
     Dates: start: 20200824, end: 20200902
  17. VENETOCLAX [Suspect]
     Active Substance: VENETOCLAX
     Dosage: 250 MG, QD
     Route: 048
     Dates: start: 20200914, end: 20200923
  18. VENETOCLAX [Suspect]
     Active Substance: VENETOCLAX
     Dosage: 250 MG, QD
     Route: 048
     Dates: start: 20201007, end: 20201016
  19. VENETOCLAX [Suspect]
     Active Substance: VENETOCLAX
     Dosage: 250 MG, QD
     Route: 048
     Dates: start: 20201102, end: 20201111
  20. VENETOCLAX [Suspect]
     Active Substance: VENETOCLAX
     Dosage: 250 MG, QD
     Route: 048
     Dates: start: 20210119, end: 20210128
  21. INNOHEP [Concomitant]
     Active Substance: TINZAPARIN SODIUM
     Indication: Anticoagulant therapy
     Dosage: 3000 IU, QD (1 IN 1 D)
     Route: 058
     Dates: start: 20200706, end: 20200713
  22. INNOHEP [Concomitant]
     Active Substance: TINZAPARIN SODIUM
     Indication: Thrombosis
     Dosage: 3000 IU, QD (1 IN 1 D)
     Route: 042
     Dates: start: 20200718, end: 20200718
  23. INNOHEP [Concomitant]
     Active Substance: TINZAPARIN SODIUM
     Dosage: 3000 IU, QD (1 IN 1 D)
     Route: 058
     Dates: start: 20200717
  24. ALLOPURINOL [Concomitant]
     Active Substance: ALLOPURINOL
     Indication: Prophylaxis
     Dosage: 100 MG, QD (1 IN 1 D)
     Route: 042
     Dates: start: 20200708, end: 20200713
  25. PHLOROGLUCINOL [Concomitant]
     Active Substance: PHLOROGLUCINOL
     Indication: Abdominal pain
     Dosage: 160 MG (80 MG,2 IN 1 D))
     Route: 048
     Dates: start: 20200828
  26. ELECTROLYTES NOS [Concomitant]
     Active Substance: ELECTROLYTES NOS
     Indication: Prophylaxis
     Dosage: 340 ML
     Route: 042
     Dates: start: 20200708, end: 20200713
  27. ZOVIRAX [Concomitant]
     Active Substance: ACYCLOVIR
     Indication: Herpes virus infection
     Dosage: 540 MG (180 MG, 3 IN 1 D)
     Route: 042
     Dates: start: 20201021
  28. LOVENOX [Concomitant]
     Active Substance: ENOXAPARIN SODIUM
     Indication: Thrombosis
     Dosage: 1000 UI/J (1 IN 1 D)
     Route: 042
     Dates: start: 20201013
  29. VOGALENE [Concomitant]
     Active Substance: METOPIMAZINE
     Indication: Vomiting
     Dosage: 15 MG, QD (5 MG, 3 IN 1 D)
     Route: 054
     Dates: start: 20210114, end: 20210116
  30. PENTACARINAT [Concomitant]
     Active Substance: PENTAMIDINE ISETHIONATE
     Indication: Infection prophylaxis
     Dosage: 300 MG, QD
     Route: 048
     Dates: start: 20210120, end: 20210120
  31. ATARAX [Concomitant]
     Active Substance: HYDROXYZINE HYDROCHLORIDE
     Indication: Vomiting
     Dosage: 10 MG, QD
     Route: 065
     Dates: start: 20200707
  32. ATARAX [Concomitant]
     Active Substance: HYDROXYZINE HYDROCHLORIDE
     Indication: Nausea

REACTIONS (12)
  - Febrile neutropenia [Recovered/Resolved]
  - Febrile neutropenia [Recovered/Resolved]
  - Febrile neutropenia [Recovered/Resolved]
  - Pyrexia [Recovered/Resolved]
  - Febrile neutropenia [Recovered/Resolved]
  - Lymphocyte count decreased [Recovered/Resolved]
  - Febrile neutropenia [Not Recovered/Not Resolved]
  - Febrile neutropenia [Recovered/Resolved]
  - Febrile bone marrow aplasia [Recovered/Resolved]
  - Lymphopenia [Unknown]
  - Febrile bone marrow aplasia [Unknown]
  - Product use issue [Unknown]

NARRATIVE: CASE EVENT DATE: 20200718
